FAERS Safety Report 6105809-4 (Version None)
Quarter: 2009Q1

REPORT INFORMATION
  Report Type: 
  Country: None (occurrence: None)
  Receive Date: 20090227
  Receipt Date: 20081229
  Transmission Date: 20090719
  Serious: Yes (Hospitalization)
  Sender: FDA-Public Use
  Company Number: 183240USA

PATIENT
  Age: 59 Year
  Sex: Female

DRUGS (3)
  1. VENLAFAXINE HYDROCHLORIDE [Suspect]
     Indication: ANXIETY
     Dosage: 37.5 MG (37.5 MG, 1 IN 1 D), ORAL
     Route: 048
     Dates: start: 20081009, end: 20081012
  2. LAMOTRIGINE [Concomitant]
  3. ALPRAZOLAM [Concomitant]

REACTIONS (2)
  - ABNORMAL BEHAVIOUR [None]
  - MENTAL STATUS CHANGES [None]
